FAERS Safety Report 25192180 (Version 1)
Quarter: 2025Q2

REPORT INFORMATION
  Report Type: Spontaneous
  Country: US (occurrence: None)
  Receive Date: 20250413
  Receipt Date: 20250413
  Transmission Date: 20250717
  Serious: Yes (Life-Threatening, Disabling)
  Sender: FDA-CTU
  Company Number: None

PATIENT
  Age: 69 Year
  Sex: Female
  Weight: 81 kg

DRUGS (38)
  1. JOURNAVX [Suspect]
     Active Substance: SUZETRIGINE
     Indication: Neuralgia
     Dosage: OTHER QUANTITY : 60 TABLET(S);?FREQUENCY : EVERY 12 HOURS;?
     Route: 048
     Dates: start: 20250314, end: 20250401
  2. PROGESTERONE [Suspect]
     Active Substance: PROGESTERONE
  3. CLONAZEPAM [Suspect]
     Active Substance: CLONAZEPAM
  4. OXCARBAZEPINE [Suspect]
     Active Substance: OXCARBAZEPINE
  5. HYDROCORTISONE [Suspect]
     Active Substance: HYDROCORTISONE
  6. FLUDROCORTISONE [Suspect]
     Active Substance: FLUDROCORTISONE
  7. OXTELLAR XR [Concomitant]
     Active Substance: OXCARBAZEPINE
  8. LEVOTHYROXINE [Concomitant]
     Active Substance: LEVOTHYROXINE
  9. PRASTERONE [Concomitant]
     Active Substance: PRASTERONE
  10. CLONAZEPAM [Concomitant]
     Active Substance: CLONAZEPAM
  11. HYDROCORTISONE [Concomitant]
     Active Substance: HYDROCORTISONE
  12. FLUDROCORTISONE [Concomitant]
     Active Substance: FLUDROCORTISONE
  13. PROGESTERONE [Concomitant]
     Active Substance: PROGESTERONE
  14. POTASSIUM CHLORIDE [Concomitant]
     Active Substance: POTASSIUM CHLORIDE
  15. FORTEO [Concomitant]
     Active Substance: TERIPARATIDE
  16. AZELASTINE [Concomitant]
     Active Substance: AZELASTINE
  17. LORAZEPAM [Concomitant]
     Active Substance: LORAZEPAM
  18. COLACE [Concomitant]
     Active Substance: DOCUSATE SODIUM
  19. MIRALAX [Concomitant]
     Active Substance: POLYETHYLENE GLYCOL 3350
  20. MELATONIN [Concomitant]
     Active Substance: MELATONIN
  21. ADVIL [Concomitant]
     Active Substance: IBUPROFEN
  22. PEPCID [Concomitant]
     Active Substance: FAMOTIDINE
  23. CANNABIDIOL [Concomitant]
     Active Substance: CANNABIDIOL
  24. SODIUM BICARBONATE [Concomitant]
     Active Substance: SODIUM BICARBONATE
  25. PROBIOTICS NOS [Concomitant]
     Active Substance: PROBIOTICS NOS
  26. COENZYME Q10 [Concomitant]
     Active Substance: DIETARY SUPPLEMENT\UBIDECARENONE
  27. OMEGA-3 ACIDS [Concomitant]
     Active Substance: OMEGA-3 FATTY ACIDS
  28. VITAMIN A [Concomitant]
     Active Substance: VITAMIN A
  29. VITAMIN B1 [Concomitant]
     Active Substance: THIAMINE HYDROCHLORIDE
  30. VITAMIN B2 [Concomitant]
     Active Substance: RIBOFLAVIN
  31. VITAMIN C [Concomitant]
     Active Substance: ASCORBIC ACID
  32. VITAMIN D3 [Concomitant]
     Active Substance: CHOLECALCIFEROL
  33. VITAMIN K [Concomitant]
     Active Substance: PHYTONADIONE
  34. VITAMIN E [Concomitant]
     Active Substance: .ALPHA.-TOCOPHEROL
  35. TruNiagen [Concomitant]
  36. R-lipoic acid [Concomitant]
  37. CALCIUM CITRATE [Concomitant]
     Active Substance: CALCIUM CITRATE
  38. MAGNESIUM [Concomitant]
     Active Substance: MAGNESIUM

REACTIONS (3)
  - Generalised tonic-clonic seizure [None]
  - Eye contusion [None]
  - Concussion [None]

NARRATIVE: CASE EVENT DATE: 20250401
